FAERS Safety Report 6734729-7 (Version None)
Quarter: 2010Q2

REPORT INFORMATION
  Report Type: 
  Country: None (occurrence: None)
  Receive Date: 20100518
  Receipt Date: 20100518
  Transmission Date: 20101027
  Serious: No
  Sender: FDA-Public Use
  Company Number: None

PATIENT
  Age: 52 Year
  Sex: Female
  Weight: 70.5 kg

DRUGS (2)
  1. TACROLIMUS [Suspect]
     Indication: LIVER TRANSPLANT
     Dosage: 2 MG BID PO
     Route: 048
     Dates: start: 20100121, end: 20100517
  2. TACROLIMUS [Suspect]
     Indication: LIVER TRANSPLANT
     Dosage: 0.5 MG BID PO
     Route: 048
     Dates: start: 20100121, end: 20100517

REACTIONS (3)
  - HEPATIC ENZYME INCREASED [None]
  - PRODUCT SUBSTITUTION ISSUE [None]
  - TRANSPLANT REJECTION [None]
